FAERS Safety Report 18370686 (Version 2)
Quarter: 2020Q4

REPORT INFORMATION
  Report Type: Spontaneous
  Country: DE (occurrence: DE)
  Receive Date: 20201012
  Receipt Date: 20201013
  Transmission Date: 20210114
  Serious: Yes (Other)
  Sender: FDA-Public Use
  Company Number: DE-MYLANLABS-2020M1079217

PATIENT
  Age: 80 Year
  Sex: Male
  Weight: 65 kg

DRUGS (19)
  1. LAMOTRIGINE. [Suspect]
     Active Substance: LAMOTRIGINE
     Dosage: 200 - 0 - 200
     Dates: start: 20171107
  2. TASIGNA [Concomitant]
     Active Substance: NILOTINIB
     Dosage: 200 MILLIGRAM, QD
     Dates: start: 201310
  3. TAVOR (LORAZEPAM) [Concomitant]
     Active Substance: LORAZEPAM
     Dosage: NUR IM NOTFALL BEI EINER ATTACKE
  4. LAMOTRIGINE. [Suspect]
     Active Substance: LAMOTRIGINE
     Indication: EPILEPSY
     Dosage: 150-0-1150MG
     Dates: start: 20180211
  5. LAMOTRIGINE. [Suspect]
     Active Substance: LAMOTRIGINE
     Dosage: 100-0-100MG
     Dates: start: 20171107
  6. LAMOTRIGINE. [Suspect]
     Active Substance: LAMOTRIGINE
     Dosage: 0-0-25
     Dates: start: 20120626
  7. LAMOTRIGINE. [Suspect]
     Active Substance: LAMOTRIGINE
     Dosage: 125-0-125
     Dates: start: 20171220
  8. ASS PROTECT [Concomitant]
     Indication: THROMBOSIS PROPHYLAXIS
  9. LAMOTRIGINE. [Suspect]
     Active Substance: LAMOTRIGINE
     Dosage: 25 - 25 - 25MG
     Dates: start: 20161108
  10. ASS PROTECT [Concomitant]
     Indication: PROPHYLAXIS
     Dosage: 1-0-0 NACH DEM ESSEN
  11. GLIVEC [Concomitant]
     Active Substance: IMATINIB MESYLATE
     Indication: CHRONIC MYELOID LEUKAEMIA
     Dosage: 4X100MG/TAG
     Dates: start: 20020211
  12. GLIVEC [Concomitant]
     Active Substance: IMATINIB MESYLATE
     Dosage: 0-0-400
     Dates: start: 20140701, end: 20141222
  13. ZOPICLODURA [Concomitant]
     Active Substance: ZOPICLONE
     Indication: SLEEP DISORDER
     Dosage: NUR IM NOTFALL BEI SCHLAFST?RUNGEN
  14. LAMOTRIGINE. [Suspect]
     Active Substance: LAMOTRIGINE
     Dosage: 75-0-75MG
     Dates: start: 20170207
  15. LEVETIRACETAM. [Suspect]
     Active Substance: LEVETIRACETAM
     Indication: EPILEPSY
     Dosage: 500 - 0 - 750MG/TAG
     Route: 048
     Dates: start: 20191030
  16. LEVETIRACETAM. [Suspect]
     Active Substance: LEVETIRACETAM
     Dosage: 500 - 0 - 750MG/TAG
     Route: 048
     Dates: start: 20190913
  17. SIMVA [Concomitant]
     Active Substance: SIMVASTATIN
     Indication: BLOOD CHOLESTEROL
     Dosage: 0-0-1 ZUM ODER NACH DEM ESSEN
  18. LEVETIRACETAM. [Suspect]
     Active Substance: LEVETIRACETAM
     Dosage: 500-0-750
     Dates: start: 20200219
  19. RAMIPRIL-ISIS [Concomitant]
     Indication: BLOOD PRESSURE MEASUREMENT
     Dosage: ZUM ODER NACH DEM ESSEN
     Dates: start: 20190705

REACTIONS (10)
  - Vitamin B1 decreased [Not Recovered/Not Resolved]
  - Adverse reaction [Unknown]
  - Gait disturbance [Not Recovered/Not Resolved]
  - Fatigue [Not Recovered/Not Resolved]
  - Dizziness [Not Recovered/Not Resolved]
  - Vitamin B12 decreased [Not Recovered/Not Resolved]
  - Basal cell carcinoma [Not Recovered/Not Resolved]
  - Vitamin B6 decreased [Not Recovered/Not Resolved]
  - Depression [Not Recovered/Not Resolved]
  - Vertigo positional [Not Recovered/Not Resolved]

NARRATIVE: CASE EVENT DATE: 20190920
